FAERS Safety Report 8101782 (Version 2)
Quarter: 2013Q1

REPORT INFORMATION
  Report Type: Spontaneous
  Country: US (occurrence: None)
  Receive Date: 20110812
  Receipt Date: 20130301
  Transmission Date: 20140127
  Serious: Yes (Other)
  Sender: FDA-Public Use
  Company Number: 976141

PATIENT
  Age: 64 Year
  Sex: Female

DRUGS (6)
  1. CALCIUM FOLINATE [Suspect]
     Indication: NEOPLASM MALIGNANT
     Dosage: ?
  2. OXALIPLATIN [Suspect]
     Indication: NEOPLASM MALIGNANT
     Dosage: 1 CYCLICAL?
     Route: 041
  3. 5-FLUOROURACIL /00098801/ [Suspect]
     Indication: NEOPLASM MALIGNANT
  4. DEXAMETHASONE [Concomitant]
  5. HYDROCORTISONE [Concomitant]
  6. DIPHENHYDRAMINE [Concomitant]

REACTIONS (3)
  - Abdominal pain [None]
  - Hypersensitivity [None]
  - Rash [None]
